FAERS Safety Report 12207367 (Version 2)
Quarter: 2016Q2

REPORT INFORMATION
  Report Type: Spontaneous
  Country: EC (occurrence: EC)
  Receive Date: 20160324
  Receipt Date: 20160427
  Transmission Date: 20160815
  Serious: Yes (Other)
  Sender: FDA-Public Use
  Company Number: EC-GLAXOSMITHKLINE-EC2016GSK039749

PATIENT
  Age: 6 Month
  Sex: Female

DRUGS (1)
  1. CUTIVATE [Suspect]
     Active Substance: FLUTICASONE PROPIONATE
     Indication: DERMATITIS ATOPIC
     Dosage: UNK
     Route: 065

REACTIONS (1)
  - Pyoderma [Recovered/Resolved]
